FAERS Safety Report 21019448 (Version 2)
Quarter: 2022Q3

REPORT INFORMATION
  Report Type: Spontaneous
  Country: US (occurrence: US)
  Receive Date: 20220628
  Receipt Date: 20220701
  Transmission Date: 20221027
  Serious: No
  Sender: FDA-Public Use
  Company Number: US-SANOFI-01153774

PATIENT
  Age: 57 Year
  Sex: Male

DRUGS (2)
  1. IRBESARTAN [Suspect]
     Active Substance: IRBESARTAN
     Indication: Hypertension
     Dosage: 150 MG, QD
     Route: 065
  2. IRBESARTAN [Suspect]
     Active Substance: IRBESARTAN
     Dosage: 150 MG, QD (NIGHTLY)
     Route: 065

REACTIONS (2)
  - Muscle spasms [Unknown]
  - Paraesthesia [Unknown]
